FAERS Safety Report 5042006-8 (Version None)
Quarter: 2006Q2

REPORT INFORMATION
  Report Type: 
  Country: None (occurrence: None)
  Receive Date: 20060630
  Receipt Date: 20060614
  Transmission Date: 20061013
  Serious: Yes (Hospitalization)
  Sender: FDA-Public Use
  Company Number: DSA_28361_2006

PATIENT
  Age: 90 Year
  Sex: Male

DRUGS (6)
  1. ENALAPRIL MALEATE [Suspect]
     Indication: HYPERTENSION
     Dosage: 10 MG QD PO
     Route: 048
     Dates: end: 20060304
  2. FUROSEMIDE/SPIRONOLACTONE [Suspect]
     Indication: HYPERTENSION
     Dosage: 1 DF Q DAY PO
     Route: 048
     Dates: end: 20060304
  3. ALBUTEROL SPIROS [Concomitant]
  4. FORMOTEROL FUMARATE [Concomitant]
  5. GINKGO [Concomitant]
  6. NITROGLYCERIN [Concomitant]

REACTIONS (6)
  - DEHYDRATION [None]
  - DIARRHOEA [None]
  - DRUG INTERACTION [None]
  - GENERAL PHYSICAL HEALTH DETERIORATION [None]
  - HYPERKALAEMIA [None]
  - RENAL FAILURE ACUTE [None]
